FAERS Safety Report 7928181-3 (Version None)
Quarter: 2011Q4

REPORT INFORMATION
  Report Type: 
  Country: None (occurrence: None)
  Receive Date: 20111118
  Receipt Date: 20111110
  Transmission Date: 20120403
  Serious: Yes (Other)
  Sender: FDA-Public Use
  Company Number: ES-JNJFOC-20111104715

PATIENT
  Age: 71 Year
  Sex: Male

DRUGS (2)
  1. STELARA [Suspect]
     Route: 058
     Dates: start: 20110801
  2. STELARA [Suspect]
     Indication: PSORIASIS
     Route: 058
     Dates: start: 20091014, end: 20110219

REACTIONS (1)
  - CEREBROVASCULAR ACCIDENT [None]
